FAERS Safety Report 5013942-3 (Version None)
Quarter: 2006Q2

REPORT INFORMATION
  Report Type: 
  Country: None (occurrence: None)
  Receive Date: 20060525
  Receipt Date: 20060520
  Transmission Date: 20061013
  Serious: Yes (Other)
  Sender: FDA-Public Use
  Company Number: 222471

PATIENT
  Sex: Female

DRUGS (1)
  1. MABTHERA [Suspect]

REACTIONS (1)
  - MALIGNANT MELANOMA [None]
